FAERS Safety Report 23237362 (Version 1)
Quarter: 2023Q4

REPORT INFORMATION
  Report Type: Report from Study
  Country: CA (occurrence: CA)
  Receive Date: 20231128
  Receipt Date: 20231128
  Transmission Date: 20240109
  Serious: Yes (Hospitalization)
  Sender: FDA-Public Use
  Company Number: CA-Eisai-EC-2023-153683

PATIENT
  Age: 74 Year
  Sex: Male

DRUGS (1)
  1. LENVIMA [Suspect]
     Active Substance: LENVATINIB
     Indication: Hepatocellular carcinoma
     Route: 048
     Dates: start: 20231109, end: 20231113

REACTIONS (4)
  - Lethargy [Unknown]
  - Incontinence [Unknown]
  - Decreased appetite [Unknown]
  - Mobility decreased [Unknown]

NARRATIVE: CASE EVENT DATE: 20231112
